FAERS Safety Report 25315238 (Version 1)
Quarter: 2025Q2

REPORT INFORMATION
  Report Type: Spontaneous
  Country: US (occurrence: US)
  Receive Date: 20250514
  Receipt Date: 20250514
  Transmission Date: 20250716
  Serious: Yes (Other)
  Sender: COOPERSURGICAL
  Company Number: US-COOPERSURGICAL, INC.-2025CPS003638

PATIENT
  Age: 35 Year
  Sex: Female
  Weight: 108.84 kg

DRUGS (6)
  1. PARAGARD T 380A [Suspect]
     Active Substance: COPPER
     Indication: Contraception
     Route: 015
     Dates: start: 20090128
  2. ADVAIR HFA [Concomitant]
     Active Substance: FLUTICASONE PROPIONATE\SALMETEROL XINAFOATE
     Dates: start: 20020101, end: 20121231
  3. ALBUTEROL [Concomitant]
     Active Substance: ALBUTEROL
     Dates: start: 19930101, end: 20210101
  4. BREO ELLIPTA [Concomitant]
     Active Substance: FLUTICASONE FUROATE\VILANTEROL TRIFENATATE
     Dates: start: 20181001, end: 20211231
  5. CHLORTHALIDONE [Concomitant]
     Active Substance: CHLORTHALIDONE
     Dates: start: 20160101
  6. FENOBIBRATE [Concomitant]
     Active Substance: FENOFIBRATE
     Dates: start: 201601

REACTIONS (19)
  - Reproductive complication associated with device [Not Recovered/Not Resolved]
  - Device breakage [Recovered/Resolved]
  - Foreign body in reproductive tract [Recovered/Resolved]
  - Complication of device removal [Recovered/Resolved]
  - Procedural pain [Recovered/Resolved]
  - Procedural nausea [Recovered/Resolved]
  - Procedural haemorrhage [Recovered/Resolved]
  - Fear-related avoidance of activities [Recovered/Resolved]
  - Aversion [Recovered/Resolved]
  - Sexual dysfunction [Unknown]
  - Uterine cervical pain [Not Recovered/Not Resolved]
  - Emotional disorder [Unknown]
  - Anxiety [Unknown]
  - Stress [Unknown]
  - Pain [Recovered/Resolved]
  - Device expulsion [Recovered/Resolved]
  - Pelvic pain [Recovered/Resolved]
  - Device use issue [Recovered/Resolved]
  - Off label use [Unknown]

NARRATIVE: CASE EVENT DATE: 20190129
